FAERS Safety Report 14467118 (Version 2)
Quarter: 2019Q1

REPORT INFORMATION
  Report Type: Other
  Country: US (occurrence: US)
  Receive Date: 20180131
  Receipt Date: 20190126
  Transmission Date: 20190417
  Serious: Yes (Hospitalization)
  Sender: FDA-Public Use
  Company Number: US-ACORDA-ACO_138010_2017

PATIENT
  Sex: Female
  Weight: 56.69 kg

DRUGS (5)
  1. PRIMIDONE. [Concomitant]
     Active Substance: PRIMIDONE
     Indication: PRODUCT USED FOR UNKNOWN INDICATION
     Dosage: UNK
     Route: 065
  2. ZINBRYTA [Suspect]
     Active Substance: DACLIZUMAB
     Indication: RELAPSING-REMITTING MULTIPLE SCLEROSIS
     Dosage: 150 MG, MONTHLY
     Route: 058
     Dates: start: 20161114
  3. AMPYRA [Suspect]
     Active Substance: DALFAMPRIDINE
     Indication: MULTIPLE SCLEROSIS
     Dosage: 10 MG, BID
     Route: 048
     Dates: start: 20150401
  4. AMPYRA [Suspect]
     Active Substance: DALFAMPRIDINE
     Indication: GAIT DISTURBANCE
     Dosage: UNK
  5. VITAMIN D3 [Concomitant]
     Active Substance: CHOLECALCIFEROL
     Indication: PRODUCT USED FOR UNKNOWN INDICATION
     Dosage: UNK
     Route: 065

REACTIONS (12)
  - Gait disturbance [Not Recovered/Not Resolved]
  - Condition aggravated [Not Recovered/Not Resolved]
  - Tremor [Unknown]
  - Vision blurred [Not Recovered/Not Resolved]
  - Blindness [Not Recovered/Not Resolved]
  - Multiple sclerosis relapse [Unknown]
  - Multiple sclerosis relapse [Not Recovered/Not Resolved]
  - Disease progression [Unknown]
  - Drug ineffective [Unknown]
  - Gait inability [Unknown]
  - Central nervous system lesion [Unknown]
  - Visual impairment [Unknown]

NARRATIVE: CASE EVENT DATE: 2015
